FAERS Safety Report 9517241 (Version 6)
Quarter: 2014Q1

REPORT INFORMATION
  Report Type: Report from Study
  Country: DE (occurrence: DE)
  Receive Date: 20130911
  Receipt Date: 20140205
  Transmission Date: 20141002
  Serious: Yes (Death, Hospitalization)
  Sender: FDA-Public Use
  Company Number: PHHY2013DE098957

PATIENT
  Age: 29 Year
  Sex: Female

DRUGS (3)
  1. FTY 720 [Suspect]
     Indication: MULTIPLE SCLEROSIS
     Dosage: 0.5 MG, QD
     Route: 048
     Dates: start: 20121009, end: 20130801
  2. CITALOPRAM [Concomitant]
     Dosage: 20 DF, QD
  3. ESCITALOPRAM [Concomitant]
     Indication: DEPRESSION
     Dates: start: 2011

REACTIONS (2)
  - Death [Fatal]
  - Status epilepticus [Unknown]
